FAERS Safety Report 9858126 (Version 1)
Quarter: 2014Q1

REPORT INFORMATION
  Report Type: Spontaneous
  Country: US (occurrence: US)
  Receive Date: 20140131
  Receipt Date: 20140131
  Transmission Date: 20141002
  Serious: Yes (Other)
  Sender: FDA-Public Use
  Company Number: US-JNJFOC-20140113924

PATIENT
  Age: 12 Year
  Sex: Female

DRUGS (1)
  1. ORTHO TRI-CYCLEN LO [Suspect]
     Indication: MENSTRUATION IRREGULAR
     Route: 048

REACTIONS (2)
  - Growth retardation [Not Recovered/Not Resolved]
  - Off label use [Unknown]
